FAERS Safety Report 8918267 (Version 3)
Quarter: 2012Q4

REPORT INFORMATION
  Report Type: Report from Study
  Country: DE (occurrence: DE)
  Receive Date: 20121120
  Receipt Date: 20121220
  Transmission Date: 20130627
  Serious: Yes (Hospitalization)
  Sender: FDA-Public Use
  Company Number: DE-PFIZER INC-2012282369

PATIENT
  Age: 57 Year
  Sex: Female
  Weight: 111 kg

DRUGS (2)
  1. TOFACITINIB CITRATE [Suspect]
     Indication: PSORIASIS VULGARIS
     Dosage: 10 mg, 2x/day
     Route: 048
     Dates: start: 20110823, end: 20120219
  2. TOFACITINIB CITRATE [Suspect]
     Dosage: 5 mg, 2x/day
     Route: 048
     Dates: start: 20120220, end: 201211

REACTIONS (1)
  - Anal abscess [Recovered/Resolved with Sequelae]
